FAERS Safety Report 19939848 (Version 3)
Quarter: 2022Q3

REPORT INFORMATION
  Report Type: Spontaneous
  Country: IN (occurrence: IN)
  Receive Date: 20211012
  Receipt Date: 20220812
  Transmission Date: 20221026
  Serious: Yes (Hospitalization, Other)
  Sender: FDA-Public Use
  Company Number: IN-IPCA LABORATORIES LIMITED-IPC-2021-IN-001734

PATIENT

DRUGS (2)
  1. WARFARIN [Suspect]
     Active Substance: WARFARIN
     Indication: Product used for unknown indication
     Dosage: 3 MILLIGRAM, QD
     Route: 065
  2. HEPARIN [Concomitant]
     Active Substance: HEPARIN SODIUM
     Indication: Product used for unknown indication
     Dosage: QD
     Route: 065

REACTIONS (7)
  - Cutaneous vasculitis [Recovering/Resolving]
  - Anticoagulant-related nephropathy [Recovering/Resolving]
  - Anticoagulation drug level above therapeutic [Recovering/Resolving]
  - Purpura [Recovering/Resolving]
  - Haematuria [Recovering/Resolving]
  - Urine output decreased [Recovering/Resolving]
  - Renal impairment [Not Recovered/Not Resolved]
